FAERS Safety Report 5892362-3 (Version None)
Quarter: 2008Q3

REPORT INFORMATION
  Report Type: 
  Country: None (occurrence: None)
  Receive Date: 20080919
  Receipt Date: 20080919
  Transmission Date: 20090109
  Serious: Yes (Other)
  Sender: FDA-Public Use
  Company Number: None

PATIENT
  Age: 56 Year
  Sex: Female
  Weight: 69.8539 kg

DRUGS (2)
  1. BUDEPRION XL 300MG - TEVA [Suspect]
     Indication: ANXIETY
     Dosage: 300MG DAILY
     Dates: start: 20080520, end: 20080714
  2. BUDEPRION XL 300MG - TEVA [Suspect]
     Indication: DEPRESSION
     Dosage: 300MG DAILY
     Dates: start: 20080520, end: 20080714

REACTIONS (4)
  - ANGER [None]
  - CONDITION AGGRAVATED [None]
  - DEPRESSION [None]
  - DRUG INTOLERANCE [None]
